FAERS Safety Report 21568105 (Version 2)
Quarter: 2022Q4

REPORT INFORMATION
  Report Type: Spontaneous
  Country: JP (occurrence: JP)
  Receive Date: 20221108
  Receipt Date: 20221125
  Transmission Date: 20230113
  Serious: Yes (Hospitalization)
  Sender: FDA-Public Use
  Company Number: JP-TEVA-2022-JP-2824338

PATIENT
  Age: 48 Year
  Sex: Male

DRUGS (2)
  1. PREDNISOLONE [Suspect]
     Active Substance: PREDNISOLONE
     Indication: Multiple sclerosis
     Dosage: ADDITIONAL INFO: TREATMENT COMPLETED
     Route: 065
  2. FINGOLIMOD [Suspect]
     Active Substance: FINGOLIMOD
     Indication: Multiple sclerosis
     Dosage: ADDITIONAL INFO: ACTION TAKEN: DRUG CONTINUED
     Route: 065

REACTIONS (3)
  - Osteonecrosis [Recovering/Resolving]
  - Arthritis infective [Recovered/Resolved]
  - Mycoplasma infection [Recovered/Resolved]
